FAERS Safety Report 4915414-0 (Version None)
Quarter: 2006Q1

REPORT INFORMATION
  Report Type: 
  Country: None (occurrence: None)
  Receive Date: 20060217
  Receipt Date: 20050919
  Transmission Date: 20060701
  Serious: Yes (Hospitalization, Other)
  Sender: FDA-Public Use
  Company Number: US-MERCK-0509USA02743

PATIENT
  Age: 71 Year
  Sex: Male
  Weight: 102 kg

DRUGS (10)
  1. VIOXX [Suspect]
     Indication: PAIN IN EXTREMITY
     Route: 048
     Dates: start: 20030601, end: 20040601
  2. POTASSIUM (UNSPECIFIED) [Concomitant]
     Route: 065
  3. ZOCOR [Concomitant]
     Route: 048
  4. RETENS [Concomitant]
     Route: 065
  5. TRAMADOLOR [Concomitant]
     Route: 065
  6. COUMADIN [Concomitant]
     Route: 065
  7. LASIX [Concomitant]
     Route: 065
  8. FELODIPINE [Concomitant]
     Route: 065
  9. ROSIGLITAZONE MALEATE [Concomitant]
     Route: 065
  10. [THERAPY UNSPECIFIED] [Concomitant]
     Route: 065

REACTIONS (12)
  - CARDIAC FAILURE [None]
  - CEREBROVASCULAR ACCIDENT [None]
  - CHEST PAIN [None]
  - EXPOSURE TO TOXIC AGENT [None]
  - GENERAL SYMPTOM [None]
  - HEPATOCELLULAR DAMAGE [None]
  - INTESTINAL MASS [None]
  - LUNG DISORDER [None]
  - MYOCARDIAL INFARCTION [None]
  - RENAL DISORDER [None]
  - THROMBOSIS [None]
  - ULCER [None]
